FAERS Safety Report 5398131-5 (Version None)
Quarter: 2007Q3

REPORT INFORMATION
  Report Type: 
  Country: None (occurrence: None)
  Receive Date: 20070726
  Receipt Date: 20070717
  Transmission Date: 20080115
  Serious: Yes (Other)
  Sender: FDA-Public Use
  Company Number: FR-PFIZER INC-2007060213

PATIENT
  Age: 61 Year
  Sex: Male

DRUGS (2)
  1. ATORVASTATIN CALCIUM [Suspect]
     Route: 048
  2. DILTIAZEM [Concomitant]

REACTIONS (5)
  - ARTHRALGIA [None]
  - DEPRESSION [None]
  - MEMORY IMPAIRMENT [None]
  - MYALGIA [None]
  - PSORIASIS [None]
